FAERS Safety Report 25238426 (Version 3)
Quarter: 2025Q2

REPORT INFORMATION
  Report Type: Report from Study
  Country: US (occurrence: US)
  Receive Date: 20250425
  Receipt Date: 20250514
  Transmission Date: 20250717
  Serious: Yes (Death, Hospitalization)
  Sender: ULTRAGENYX PHARMACEUTICAL
  Company Number: US-ULTRAGENYX PHARMACEUTICAL INC.-US-UGX-25-00797

PATIENT
  Age: 11 Year
  Sex: Female
  Weight: 22.23 kg

DRUGS (3)
  1. DOJOLVI [Suspect]
     Active Substance: TRIHEPTANOIN
     Indication: Mitochondrial encephalomyopathy
     Route: 048
     Dates: start: 20211028, end: 20250408
  2. KEPPRA [Concomitant]
     Active Substance: LEVETIRACETAM
     Indication: Seizure
     Dosage: 1 GRAM, BID
  3. GLUCOSAMINE [Concomitant]
     Active Substance: GLUCOSAMINE
     Indication: Seizure
     Dosage: 75 MILLIGRAM, BID

REACTIONS (3)
  - Cerebrovascular accident [Fatal]
  - Respiratory disorder [Unknown]
  - Off label use [Unknown]

NARRATIVE: CASE EVENT DATE: 20250408
